FAERS Safety Report 10131321 (Version 1)
Quarter: 2014Q2

REPORT INFORMATION
  Report Type: Spontaneous
  Country: US (occurrence: US)
  Receive Date: 20140428
  Receipt Date: 20140428
  Transmission Date: 20141212
  Serious: No
  Sender: FDA-Public Use
  Company Number: US-GLAXOSMITHKLINE-A1062895A

PATIENT
  Sex: Female

DRUGS (2)
  1. ONDANSETRON [Suspect]
     Indication: HYPEREMESIS GRAVIDARUM
     Dosage: 1MGH CONTINUOUS
     Route: 058
     Dates: start: 20140224
  2. HYDRATION [Concomitant]

REACTIONS (1)
  - Exposure during pregnancy [Unknown]
